FAERS Safety Report 4783562-4 (Version None)
Quarter: 2005Q3

REPORT INFORMATION
  Report Type: 
  Country: None (occurrence: None)
  Receive Date: 20050929
  Receipt Date: 20050923
  Transmission Date: 20060218
  Serious: Yes (Death)
  Sender: FDA-Public Use
  Company Number: GB-JNJFOC-20050905786

PATIENT
  Age: 6 Year
  Sex: Female

DRUGS (7)
  1. CISAPRIDE [Suspect]
     Indication: GASTROOESOPHAGEAL REFLUX DISEASE
     Dosage: FROM AGE 4 YEARS 8 MONTHS UNTIL HER DEATH.
  2. AMITRIPTYLINE HCL [Suspect]
     Dosage: 1.1 M/KG/DAY AT AGE 5 YEARS 7 MONTHS UNTIL HER DEATH.
  3. AMITRIPTYLINE HCL [Suspect]
     Dosage: 0.75 MG/KG/DAY AT AGE 5 YEARS 5 MONTHS.
  4. AMITRIPTYLINE HCL [Suspect]
     Dosage: SPORADICALLY BEFORE AGE 4, 6 MG NIGHTLY AT 4 YEARS 10 MOS., 3.4 MG TWICE DAILY AT 5 YEARS 2 MOS.
  5. RANITIDINE [Concomitant]
  6. FUROSEMIDE [Concomitant]
  7. AMILORIDE HCL [Concomitant]

REACTIONS (5)
  - CARDIOMEGALY [None]
  - CONGESTIVE CARDIOMYOPATHY [None]
  - DILATATION VENTRICULAR [None]
  - DRUG INTERACTION [None]
  - VENTRICULAR ARRHYTHMIA [None]
